FAERS Safety Report 6085168-6 (Version None)
Quarter: 2009Q1

REPORT INFORMATION
  Report Type: 
  Country: None (occurrence: None)
  Receive Date: 20090220
  Receipt Date: 20090217
  Transmission Date: 20090719
  Serious: No
  Sender: FDA-Public Use
  Company Number: JP-ASTRAZENECA-2009AP00903

PATIENT
  Age: 66 Year
  Sex: Male

DRUGS (5)
  1. CRESTOR [Suspect]
     Indication: HYPERCHOLESTEROLAEMIA
     Route: 048
     Dates: start: 20080830, end: 20090116
  2. LONGES [Suspect]
     Indication: HYPERTENSION
     Route: 048
     Dates: start: 20030429
  3. ADALAT [Suspect]
     Indication: HYPERTENSION
     Route: 048
     Dates: start: 20060401
  4. MOHRUS [Suspect]
     Route: 062
     Dates: start: 20081121
  5. ULGUT [Suspect]
     Dosage: DOSE UNKNOWN
     Route: 048

REACTIONS (1)
  - LIVER DISORDER [None]
